FAERS Safety Report 7503119-1 (Version None)
Quarter: 2011Q2

REPORT INFORMATION
  Report Type: 
  Country: None (occurrence: None)
  Receive Date: 20110525
  Receipt Date: 20110519
  Transmission Date: 20111010
  Serious: Yes (Other)
  Sender: FDA-Public Use
  Company Number: US-PFIZER INC-2011108481

PATIENT
  Sex: Female

DRUGS (1)
  1. GABAPENTIN [Suspect]
     Indication: NEUROPATHY PERIPHERAL
     Dosage: UNK

REACTIONS (5)
  - EYE MOVEMENT DISORDER [None]
  - COORDINATION ABNORMAL [None]
  - DIZZINESS [None]
  - DYSKINESIA [None]
  - TREMOR [None]
